FAERS Safety Report 5458108-8 (Version None)
Quarter: 2007Q3

REPORT INFORMATION
  Report Type: 
  Country: None (occurrence: None)
  Receive Date: 20070919
  Receipt Date: 20070907
  Transmission Date: 20080115
  Serious: Yes (Hospitalization)
  Sender: FDA-Public Use
  Company Number: NO-JNJFOC-20070901625

PATIENT
  Sex: Female

DRUGS (9)
  1. REMICADE [Suspect]
     Indication: RHEUMATOID ARTHRITIS
     Route: 042
  2. METHOTREXATE [Suspect]
     Indication: RHEUMATOID ARTHRITIS
  3. HUMIRA [Suspect]
     Indication: RHEUMATOID ARTHRITIS
     Route: 042
  4. GLUCOPHAGE [Concomitant]
     Route: 048
  5. COZAAR [Concomitant]
     Route: 048
  6. AMARYL [Concomitant]
     Dosage: 4+2DAILY
     Route: 048
  7. MODURETIC MITE [Concomitant]
     Route: 048
  8. FOLIC ACID [Concomitant]
     Route: 048
  9. INDOCIN [Concomitant]

REACTIONS (1)
  - B-CELL LYMPHOMA STAGE III [None]
